FAERS Safety Report 5142721-1 (Version None)
Quarter: 2006Q4

REPORT INFORMATION
  Report Type: 
  Country: None (occurrence: None)
  Receive Date: 20061027
  Receipt Date: 20061017
  Transmission Date: 20070319
  Serious: Yes (Disabling)
  Sender: FDA-Public Use
  Company Number: GXKR2006ES06504

PATIENT
  Age: 45 Year
  Sex: Male

DRUGS (6)
  1. PREDNISOLONE TAB [Suspect]
     Indication: POSTOPERATIVE CARE
     Dosage: SEE IMAGE
     Route: 048
  2. PREDNISOLONE ACETATE (NGX) (PRDNISOLONE) [Suspect]
     Indication: POSTOPERATIVE CARE
     Dosage: SEE IMAGE
     Route: 061
  3. KETOROLAC (NGX) (KETOROLAC) [Suspect]
     Indication: POSTOPERATIVE CARE
     Dosage: SEE IMAGE
     Route: 061
  4. NEOMYCIN [Concomitant]
  5. POLY-PRED (NEOMYCIN SULFATE, POLYMYXIN B SULFATE, PREDNISOLONE ACETATE [Concomitant]
  6. CYCLOPENTOLATE (CYCLOPENTOLATE) 1% [Concomitant]

REACTIONS (3)
  - CORNEAL SCAR [None]
  - DRUG INTERACTION [None]
  - ULCERATIVE KERATITIS [None]
